FAERS Safety Report 8084163-5 (Version None)
Quarter: 2012Q1

REPORT INFORMATION
  Report Type: 
  Country: None (occurrence: None)
  Receive Date: 20120128
  Receipt Date: 20110216
  Transmission Date: 20120608
  Serious: Yes (Hospitalization)
  Sender: FDA-Public Use
  Company Number: US-ABBOTT-11P-163-0699363-00

PATIENT
  Sex: Female
  Weight: 81.266 kg

DRUGS (6)
  1. PREDNISONE TAB [Concomitant]
     Dates: start: 20101101, end: 20101201
  2. SULFUSCIOZIN [Concomitant]
     Indication: PRODUCT USED FOR UNKNOWN INDICATION
  3. HUMIRA [Suspect]
     Indication: CROHN'S DISEASE
     Route: 058
     Dates: start: 20080101, end: 20110117
  4. PREDNISONE TAB [Concomitant]
     Dates: start: 20101201, end: 20110118
  5. HUMIRA [Suspect]
     Indication: CROHN'S DISEASE
     Route: 058
     Dates: start: 20110117
  6. PREDNISONE TAB [Concomitant]
     Indication: CROHN'S DISEASE

REACTIONS (3)
  - CROHN'S DISEASE [None]
  - INJECTION SITE PAIN [None]
  - ABDOMINAL PAIN [None]
